FAERS Safety Report 5600980-2 (Version None)
Quarter: 2008Q1

REPORT INFORMATION
  Report Type: 
  Country: None (occurrence: None)
  Receive Date: 20080124
  Receipt Date: 20080116
  Transmission Date: 20080703
  Serious: Yes (Other)
  Sender: FDA-Public Use
  Company Number: PHHY2008JP00659

PATIENT
  Age: 67 Year
  Sex: Female

DRUGS (10)
  1. ZOMETA [Suspect]
     Indication: METASTASES TO BONE
     Dosage: 4 MG/DAY
     Route: 041
     Dates: start: 20070501
  2. FERRUM [Concomitant]
     Route: 048
  3. DEPAS [Concomitant]
     Route: 048
  4. GANATON [Concomitant]
  5. VOGLIBOSE [Concomitant]
     Route: 048
  6. PLATIBIT [Concomitant]
  7. METEBANYL [Concomitant]
  8. ATARAX [Suspect]
  9. AMARYL [Concomitant]
     Route: 048
  10. PRAVASTATIN SODIUM [Concomitant]
     Route: 048

REACTIONS (12)
  - ABSCESS DRAINAGE [None]
  - ABSCESS MANAGEMENT [None]
  - BONE SWELLING [None]
  - DENTAL OPERATION [None]
  - OSTEOMYELITIS [None]
  - OSTEONECROSIS [None]
  - PAIN [None]
  - PRIMARY SEQUESTRUM [None]
  - SWELLING [None]
  - TOOTH ABSCESS [None]
  - TOOTH EXTRACTION [None]
  - TRISMUS [None]
